FAERS Safety Report 22216739 (Version 1)
Quarter: 2023Q2

REPORT INFORMATION
  Report Type: Spontaneous
  Country: US (occurrence: US)
  Receive Date: 20230417
  Receipt Date: 20230417
  Transmission Date: 20230722
  Serious: No
  Sender: FDA-Public Use
  Company Number: US-drreddys-SPO/USA/23/0162859

PATIENT
  Age: 33 Year
  Sex: Female

DRUGS (2)
  1. ZENATANE [Suspect]
     Active Substance: ISOTRETINOIN
     Indication: Product used for unknown indication
     Dosage: RMA ISSUE DATE: 16 NOVEMBER 2022 01:57:13 PM
  2. ZENATANE [Suspect]
     Active Substance: ISOTRETINOIN
     Dosage: RMA ISSUE DATE: 13 DECEMBER 2022 09:59:23 AM, 12 JANUARY 2023 03:02:30 PM, 23 FEBRUARY 2023 10:35:47

REACTIONS (1)
  - Adverse drug reaction [Unknown]
